FAERS Safety Report 7283503-4 (Version None)
Quarter: 2011Q1

REPORT INFORMATION
  Report Type: 
  Country: None (occurrence: None)
  Receive Date: 20110209
  Receipt Date: 20110202
  Transmission Date: 20110831
  Serious: Yes (Life-Threatening)
  Sender: FDA-Public Use
  Company Number: FR-GENZYME-THYM-1002299

PATIENT
  Sex: Female
  Weight: 60 kg

DRUGS (2)
  1. THYMOGLOBULIN [Suspect]
     Indication: BONE MARROW CONDITIONING REGIMEN
     Dosage: 2.5 MG/KG, UNK
     Route: 042
     Dates: start: 20101210, end: 20101213
  2. MABCAMPATH [Concomitant]
     Indication: BONE MARROW CONDITIONING REGIMEN
     Dosage: 20 MG, QD
     Dates: start: 20101211, end: 20101212

REACTIONS (1)
  - ANGIOEDEMA [None]
